FAERS Safety Report 21816667 (Version 1)
Quarter: 2023Q1

REPORT INFORMATION
  Report Type: Spontaneous
  Country: US (occurrence: US)
  Receive Date: 20230104
  Receipt Date: 20230104
  Transmission Date: 20230418
  Serious: No
  Sender: FDA-Public Use
  Company Number: US-UNIQUE PHARMACEUTICAL LABORATORIES, A DIV. OF JBCPL-2022UNI000060

PATIENT
  Age: 74 Year
  Sex: Female
  Weight: 77.1 kg

DRUGS (4)
  1. DICLOFENAC [Suspect]
     Active Substance: DICLOFENAC
     Indication: Exostosis
     Dosage: UNK, BID
     Route: 048
     Dates: start: 20220307
  2. DICLOFENAC [Suspect]
     Active Substance: DICLOFENAC
     Indication: Ear inflammation
  3. MUCINEX [Concomitant]
     Active Substance: GUAIFENESIN
     Indication: Nasopharyngitis
     Dosage: UNK
     Route: 065
  4. Vitamin c tablets [Concomitant]
     Indication: Product used for unknown indication
     Dosage: UNK
     Route: 065

REACTIONS (2)
  - Abdominal pain upper [Unknown]
  - Product use in unapproved indication [Unknown]
